FAERS Safety Report 7462930-6 (Version None)
Quarter: 2011Q2

REPORT INFORMATION
  Report Type: 
  Country: None (occurrence: None)
  Receive Date: 20110506
  Receipt Date: 20110418
  Transmission Date: 20111010
  Serious: Yes (Hospitalization, Other)
  Sender: FDA-Public Use
  Company Number: US-BAYER-201033820NA

PATIENT
  Age: 29 Year
  Sex: Female
  Weight: 64 kg

DRUGS (7)
  1. ANTIBIOTICS [Concomitant]
     Dosage: UNK
     Dates: start: 20070801
  2. YASMIN [Suspect]
     Indication: CONTRACEPTION
     Dosage: UNK UNK, UNK
     Route: 065
     Dates: start: 20050501, end: 20071001
  3. ATENOLOL [Concomitant]
     Indication: MITRAL VALVE PROLAPSE
     Dosage: UNK
     Dates: start: 20000101, end: 20080101
  4. YAZ [Suspect]
     Indication: CONTRACEPTION
     Dosage: UNK UNK, UNK
     Route: 065
     Dates: start: 20050501, end: 20071001
  5. ST. JOHN'S WORT [Concomitant]
     Dosage: UNK
     Dates: start: 20000101, end: 20080101
  6. STEROIDS INJECTIONS [Concomitant]
     Dosage: UNK
     Dates: start: 20070801
  7. ATENOLOL [Concomitant]
     Indication: TACHYCARDIA

REACTIONS (2)
  - PULMONARY EMBOLISM [None]
  - DEEP VEIN THROMBOSIS [None]
